FAERS Safety Report 21473104 (Version 1)
Quarter: 2022Q4

REPORT INFORMATION
  Report Type: Spontaneous
  Country: US (occurrence: None)
  Receive Date: 20221017
  Receipt Date: 20221017
  Transmission Date: 20230113
  Serious: No
  Sender: FDA-Public Use
  Company Number: None

PATIENT
  Age: 91 Year
  Sex: Female
  Weight: 62.32 kg

DRUGS (13)
  1. LENALIDOMIDE [Suspect]
     Active Substance: LENALIDOMIDE
     Indication: Plasma cell myeloma
     Dosage: FREQUENCY : AS DIRECTED;?
     Route: 048
     Dates: start: 202209
  2. ASCORBIC ACID [Concomitant]
     Active Substance: ASCORBIC ACID
  3. DECADRON [Concomitant]
     Active Substance: DEXAMETHASONE
  4. DEAMETHASONE [Concomitant]
  5. FLUZONE [Concomitant]
     Active Substance: INFLUENZA A VIRUS A/CALIFORNIA/7/2009 X-179A (H1N1) ANTIGEN (FORMALDEHYDE INACTIVATED)\INFLUENZA A V
  6. LACTASE [Concomitant]
     Active Substance: LACTASE
  7. LISINOPRIL [Concomitant]
     Active Substance: LISINOPRIL
  8. ORTHOTIC [Concomitant]
  9. PAPAYA [Concomitant]
     Active Substance: PAPAYA
  10. PFIZER-BIONTECH COVID-19 [Concomitant]
  11. SYNTHROID [Concomitant]
     Active Substance: LEVOTHYROXINE SODIUM
  12. VITAMIN D3 [Concomitant]
     Active Substance: CHOLECALCIFEROL
  13. XANAX [Concomitant]
     Active Substance: ALPRAZOLAM

REACTIONS (2)
  - Therapy cessation [None]
  - Hospice care [None]
